FAERS Safety Report 5788389-2 (Version None)
Quarter: 2008Q2

REPORT INFORMATION
  Report Type: 
  Country: None (occurrence: None)
  Receive Date: 20080625
  Receipt Date: 20080616
  Transmission Date: 20081010
  Serious: Yes (Hospitalization)
  Sender: FDA-Public Use
  Company Number: KR-PFIZER INC-2008050944

PATIENT
  Age: 58 Year
  Sex: Female

DRUGS (3)
  1. NORVASC [Suspect]
     Route: 048
  2. LIPITOR [Suspect]
     Route: 048
  3. ZYLORIC ^FRESENIUS^ [Concomitant]
     Route: 048

REACTIONS (7)
  - ANGIOEDEMA [None]
  - ASTHENIA [None]
  - GUILLAIN-BARRE SYNDROME [None]
  - MYALGIA [None]
  - MYOPATHY [None]
  - RASH [None]
  - URTICARIA [None]
